FAERS Safety Report 4595528-8 (Version None)
Quarter: 2005Q1

REPORT INFORMATION
  Report Type: 
  Country: None (occurrence: None)
  Receive Date: 20050228
  Receipt Date: 20050228
  Transmission Date: 20050727
  Serious: Yes (Other)
  Sender: FDA-Public Use
  Company Number: None

PATIENT
  Sex: Female
  Weight: 58.9676 kg

DRUGS (11)
  1. LEVOTHYROXINE 75 MCG SANDOZ [Suspect]
     Indication: HYPERTENSION
     Dosage: 75 MCG DAILY PO
     Route: 048
     Dates: start: 20041018
  2. LEVOTHYROXINE 75 MCG SANDOZ [Suspect]
     Indication: HYPOTHYROIDISM
     Dosage: 75 MCG DAILY PO
     Route: 048
     Dates: start: 20041018
  3. LEVOTHYROXINE 75 MCG SANDOZ [Suspect]
     Indication: HYPERTENSION
     Dosage: 75 MCG DAILY PO
     Route: 048
     Dates: start: 20041212
  4. LEVOTHYROXINE 75 MCG SANDOZ [Suspect]
     Indication: HYPOTHYROIDISM
     Dosage: 75 MCG DAILY PO
     Route: 048
     Dates: start: 20041212
  5. LEVOTHYROXINE 75 MCG SANDOZ [Suspect]
     Indication: HYPERTENSION
     Dosage: 75 MCG DAILY PO
     Route: 048
     Dates: start: 20050111
  6. LEVOTHYROXINE 75 MCG SANDOZ [Suspect]
     Indication: HYPOTHYROIDISM
     Dosage: 75 MCG DAILY PO
     Route: 048
     Dates: start: 20050111
  7. AVALIDE [Concomitant]
  8. PLENDIL [Concomitant]
  9. ASPIRIN [Concomitant]
  10. ATENOLOL [Concomitant]
  11. CITRACAL [Concomitant]

REACTIONS (2)
  - PHARMACEUTICAL PRODUCT COMPLAINT [None]
  - THYROID FUNCTION TEST ABNORMAL [None]
